FAERS Safety Report 21435171 (Version 1)
Quarter: 2022Q4

REPORT INFORMATION
  Report Type: Spontaneous
  Country: FR (occurrence: FR)
  Receive Date: 20221010
  Receipt Date: 20221010
  Transmission Date: 20230113
  Serious: Yes (Death)
  Sender: FDA-Public Use
  Company Number: None

PATIENT
  Age: 54 Year
  Sex: Male
  Weight: 55 kg

DRUGS (8)
  1. CISPLATIN [Suspect]
     Active Substance: CISPLATIN
     Indication: Testis cancer
     Dates: start: 202205, end: 20220626
  2. BLEOMYCIN [Suspect]
     Active Substance: BLEOMYCIN SULFATE
     Indication: Testis cancer
     Dates: start: 202205, end: 20220626
  3. ETOPOSIDE [Suspect]
     Active Substance: ETOPOSIDE
     Indication: Testis cancer
     Dates: start: 202205, end: 20220626
  4. CYAMEMAZINE [Concomitant]
     Active Substance: CYAMEMAZINE
     Dosage: STRENGTH 25 MG
  5. ZOPICLONE [Concomitant]
     Active Substance: ZOPICLONE
  6. OXAZEPAM [Concomitant]
     Active Substance: OXAZEPAM
     Dosage: STRENGTH 10 MG
  7. SULPIRIDE [Concomitant]
     Active Substance: SULPIRIDE
  8. TRAMADOL HYDROCHLORIDE [Concomitant]
     Active Substance: TRAMADOL HYDROCHLORIDE

REACTIONS (1)
  - Interstitial lung disease [Fatal]

NARRATIVE: CASE EVENT DATE: 20220704
